FAERS Safety Report 7250234-6 (Version None)
Quarter: 2011Q1

REPORT INFORMATION
  Report Type: 
  Country: None (occurrence: None)
  Receive Date: 20110121
  Receipt Date: 20110121
  Transmission Date: 20110831
  Serious: Yes (Other)
  Sender: FDA-Public Use
  Company Number: None

PATIENT
  Age: 54 Year
  Sex: Male
  Weight: 104.5 kg

DRUGS (2)
  1. PHENYTOIN [Suspect]
     Indication: EPILEPSY
     Dosage: 3 CAPSULES QD BY MOUTH
     Dates: start: 20100801, end: 20100901
  2. PHENYTOIN [Suspect]
     Indication: EPILEPSY
     Dosage: 2 CAPSULES BID BY MOUTH
     Dates: start: 20080701

REACTIONS (7)
  - PARAESTHESIA [None]
  - FEELING ABNORMAL [None]
  - FEELING JITTERY [None]
  - ANXIETY [None]
  - FATIGUE [None]
  - PRODUCT SUBSTITUTION ISSUE [None]
  - HYPOAESTHESIA [None]
